FAERS Safety Report 7594186-8 (Version None)
Quarter: 2011Q3

REPORT INFORMATION
  Report Type: 
  Country: None (occurrence: None)
  Receive Date: 20110706
  Receipt Date: 20110629
  Transmission Date: 20111222
  Serious: Yes (Hospitalization)
  Sender: FDA-Public Use
  Company Number: DK-ABBOTT-10P-044-0797322-00

PATIENT
  Sex: Female
  Weight: 60 kg

DRUGS (18)
  1. KALEORID [Concomitant]
     Indication: MINERAL SUPPLEMENTATION
     Dosage: 1500/2250MG + 2250MG DAILY
     Route: 048
     Dates: start: 20101013
  2. OXYCODONE HCL [Concomitant]
     Indication: PRODUCT USED FOR UNKNOWN INDICATION
     Dosage: DAILY DOSE: 20 MILLIGRAM(S), MAX 20MG
     Route: 048
  3. PANTOPRAZOLE [Concomitant]
     Indication: DYSPEPSIA
     Route: 048
     Dates: start: 20101015
  4. VISCOTEARS [Concomitant]
     Indication: DRY EYE
     Dosage: 2MG/G, ROUTE: CONJUNCTIVAL
     Route: 050
     Dates: start: 20101013, end: 20101025
  5. FRAGMIN [Concomitant]
     Indication: THROMBOSIS PROPHYLAXIS
     Dosage: DAILY DOSE: 5000 IE, AS USED: 5000 IE, FREQUENCY: ONCE A DAY
     Route: 042
     Dates: start: 20101014, end: 20101018
  6. OXYCODONE HCL [Concomitant]
     Indication: ANALGESIC THERAPY
     Dates: start: 20101014, end: 20101107
  7. TEVETEN [Suspect]
     Indication: HYPERTENSION
     Dosage: DAILY DOSE: 600 MILLIGRAM(S)
     Route: 048
     Dates: start: 20080930, end: 20101016
  8. OXYCONTIN [Concomitant]
     Indication: ANALGESIC THERAPY
     Dosage: DAILY DOSE: 5-10 MG
     Route: 048
  9. LACTULOSE [Concomitant]
     Indication: LAXATIVE SUPPORTIVE CARE
     Dosage: 667 MILLIGRAM/MILLILITER
     Route: 048
     Dates: start: 20101014
  10. FERROUS SULFATE TAB [Concomitant]
     Indication: PRODUCT USED FOR UNKNOWN INDICATION
     Dosage: DAILY DOSE: 200 MILLIGRAM(S)
     Route: 048
     Dates: start: 20101013, end: 20101114
  11. MULTI-TABS [Concomitant]
     Indication: PRODUCT USED FOR UNKNOWN INDICATION
     Dosage: DAILY DOSE: 1 DOSAGE FORM
     Route: 065
  12. PRIMPERAN TAB [Concomitant]
     Indication: NAUSEA
     Route: 048
     Dates: start: 20101013, end: 20101014
  13. MORFIN [Concomitant]
     Indication: ANALGESIC THERAPY
     Dosage: DAILY DOSE:  UNKNOWN, AS USED: 2.5MG, FREQUENCY: AS NEEDED
     Route: 065
  14. TOILAX [Concomitant]
     Indication: LAXATIVE SUPPORTIVE CARE
     Dosage: DAILY DOSE: 10 MILLIGRAM(S)
     Route: 048
     Dates: start: 20101014, end: 20101104
  15. CALCIUM CARBONATE [Concomitant]
     Indication: PRODUCT USED FOR UNKNOWN INDICATION
     Dosage: DAILY DOSE: 2 DOSAGE FORM
     Route: 065
  16. VITAMIN D [Concomitant]
     Indication: PRODUCT USED FOR UNKNOWN INDICATION
     Dosage: DAILY DOSE:  UNKNOWN
     Route: 065
  17. ISRADIPINE [Concomitant]
     Indication: HYPERTENSION
     Dosage: DAILY DOSE: 5 MILLIGRAM(S)
     Route: 048
  18. PINEX [Concomitant]
     Indication: ANALGESIC THERAPY
     Route: 048
     Dates: start: 20101013, end: 20101014

REACTIONS (1)
  - HYPONATRAEMIA [None]
